FAERS Safety Report 7976992 (Version 15)
Quarter: 2013Q4

REPORT INFORMATION
  Report Type: Spontaneous
  Country: US (occurrence: US)
  Receive Date: 20110607
  Receipt Date: 20131204
  Transmission Date: 20140711
  Serious: Yes (Hospitalization, Other)
  Sender: FDA-Public Use
  Company Number: US-ASTRAZENECA-2011SE32252

PATIENT
  Age: 65 Year
  Sex: Female

DRUGS (25)
  1. NEXIUM [Suspect]
     Indication: GASTROOESOPHAGEAL REFLUX DISEASE
     Route: 048
     Dates: start: 2003, end: 2009
  2. NEXIUM [Suspect]
     Indication: GASTROOESOPHAGEAL REFLUX DISEASE
     Route: 048
     Dates: start: 20031031
  3. NEXIUM [Suspect]
     Indication: GASTROOESOPHAGEAL REFLUX DISEASE
     Route: 048
     Dates: start: 2004, end: 2010
  4. NEXIUM [Suspect]
     Indication: GASTROOESOPHAGEAL REFLUX DISEASE
     Route: 048
     Dates: start: 20060201
  5. NEXIUM [Suspect]
     Indication: GASTROOESOPHAGEAL REFLUX DISEASE
     Route: 048
     Dates: start: 200910
  6. ACIPHEX [Concomitant]
     Indication: GASTROOESOPHAGEAL REFLUX DISEASE
     Dates: start: 200704
  7. TUMS [Concomitant]
     Dates: start: 2000, end: 2002
  8. ROLAIDS [Concomitant]
     Dates: start: 2000, end: 2002
  9. VITAMIN D [Concomitant]
     Indication: OSTEOPOROSIS
  10. FORTEO [Concomitant]
     Indication: OSTEOPOROSIS
     Route: 065
  11. EVAMIST [Concomitant]
  12. DEPOESTRADOL [Concomitant]
     Dates: start: 1996, end: 1999
  13. ALEVE [Concomitant]
     Indication: PAIN
     Dates: start: 19980828
  14. ALEVE [Concomitant]
     Indication: PAIN
  15. ADVIL [Concomitant]
     Dates: start: 19980828
  16. DARVOCET-N [Concomitant]
     Dosage: 100 TID
  17. LUNESTA [Concomitant]
     Route: 048
     Dates: start: 20050929
  18. LEVAQUIN [Concomitant]
     Route: 048
     Dates: start: 20050929
  19. ZITHROMAX [Concomitant]
     Route: 065
     Dates: start: 20051024
  20. BENZONATATE [Concomitant]
     Indication: COUGH
     Route: 048
     Dates: start: 20051024
  21. OMEPRAZOLE [Concomitant]
     Dates: start: 20120301
  22. EVISTA [Concomitant]
     Dates: start: 20061026
  23. ENCORA [Concomitant]
     Dates: start: 20061003
  24. CEFDINIR [Concomitant]
     Dates: start: 20080617
  25. PHENAZOPYRIDINE [Concomitant]
     Dates: start: 20080903

REACTIONS (14)
  - Spinal disorder [Unknown]
  - Back injury [Unknown]
  - Spinal compression fracture [Unknown]
  - Lumbar radiculopathy [Unknown]
  - Post laminectomy syndrome [Unknown]
  - Osteoporosis [Unknown]
  - Bone density decreased [Unknown]
  - Bone loss [Unknown]
  - Vitamin D deficiency [Unknown]
  - Emotional distress [Unknown]
  - Fractured coccyx [Unknown]
  - Fracture [Unknown]
  - Arthritis [Unknown]
  - Osteopenia [Unknown]
